FAERS Safety Report 12603484 (Version 6)
Quarter: 2020Q3

REPORT INFORMATION
  Report Type: Spontaneous
  Country: IL (occurrence: IL)
  Receive Date: 20160728
  Receipt Date: 20200616
  Transmission Date: 20201105
  Serious: Yes (Hospitalization, Disabling, Other)
  Sender: FDA-Public Use
  Company Number: IL-JNJFOC-20160721424

PATIENT
  Age: 75 Year
  Sex: Male
  Weight: 80 kg

DRUGS (5)
  1. RIVAROXABAN [Suspect]
     Active Substance: RIVAROXABAN
     Indication: HIP FRACTURE
     Dosage: 10 MG, QD
     Route: 048
     Dates: start: 20160707, end: 20160710
  2. FINERENONE. [Suspect]
     Active Substance: FINERENONE
     Dosage: DAILY DOSE 10 MG
     Route: 048
     Dates: start: 20160619, end: 20160620
  3. FINERENONE. [Suspect]
     Active Substance: FINERENONE
     Dosage: UNK
     Route: 048
     Dates: start: 20160417, end: 20160720
  4. CLEXANE [Concomitant]
     Active Substance: ENOXAPARIN SODIUM
     Indication: ANTICOAGULANT THERAPY
  5. FINERENONE. [Suspect]
     Active Substance: FINERENONE
     Indication: DIABETIC NEPHROPATHY
     Dosage: DAILY DOSE 10 MG
     Route: 048
     Dates: start: 20160417, end: 20160616

REACTIONS (4)
  - Melaena [Recovered/Resolved]
  - Hip fracture [Recovered/Resolved]
  - Melaena [Recovered/Resolved]
  - Dizziness [Not Recovered/Not Resolved]

NARRATIVE: CASE EVENT DATE: 20160619
